FAERS Safety Report 8846825 (Version 1)
Quarter: 2012Q4

REPORT INFORMATION
  Report Type: 
  Country: FR (occurrence: FR)
  Receive Date: 20121018
  Receipt Date: 20121018
  Transmission Date: 20130627
  Serious: Yes (Other)
  Sender: FDA-Public Use
  Company Number: FR-SANOFI-AVENTIS-2012SA025154

PATIENT
  Age: 5 Year
  Sex: Female

DRUGS (5)
  1. CLAFORAN [Suspect]
     Indication: PLEUROPNEUMONIA
     Route: 042
     Dates: start: 20120131, end: 20120315
  2. RIFAMPIN [Suspect]
     Indication: PLEUROPNEUMONIA
     Route: 042
     Dates: start: 20120131, end: 20120315
  3. JOSAMYCIN [Suspect]
     Indication: PLEUROPNEUMONIA
     Route: 048
     Dates: start: 20120131, end: 20120215
  4. FLUCONAZOLE [Suspect]
     Indication: DRUG USE FOR UNKNOWN INDICATION
     Route: 042
     Dates: start: 20120217, end: 20120227
  5. FUNGIZONE [Suspect]
     Indication: DRUG USE FOR UNKNOWN INDICATION
     Route: 042
     Dates: start: 20120218, end: 20120225

REACTIONS (5)
  - Drug reaction with eosinophilia and systemic symptoms [Recovered/Resolved]
  - Pruritus [Recovered/Resolved]
  - Eosinophilia [Recovered/Resolved]
  - Pyrexia [Recovered/Resolved]
  - Toxic skin eruption [Recovered/Resolved]
